FAERS Safety Report 24587591 (Version 1)
Quarter: 2024Q4

REPORT INFORMATION
  Report Type: Other
  Country: US (occurrence: US)
  Receive Date: 20241107
  Receipt Date: 20241107
  Transmission Date: 20250115
  Serious: Yes (Death, Hospitalization, Other)
  Sender: ANI
  Company Number: US-ANIPHARMA-012706

PATIENT
  Age: 52 Year
  Sex: Female

DRUGS (11)
  1. CYCLOPHOSPHAMIDE [Suspect]
     Active Substance: CYCLOPHOSPHAMIDE
     Indication: Cutaneous T-cell lymphoma stage II
     Dosage: 2 ROUNDS OF R-CHOP CHEMOTHERAPY
  2. CLOBETASOL [Suspect]
     Active Substance: CLOBETASOL
     Indication: Dermatitis atopic
  3. DOXORUBICIN [Concomitant]
     Active Substance: DOXORUBICIN
     Indication: Cutaneous T-cell lymphoma stage II
     Dosage: 2 ROUNDS OF R-CHOP CHEMOTHERAPY
  4. VINCRISTINE [Concomitant]
     Active Substance: VINCRISTINE
     Indication: Cutaneous T-cell lymphoma stage II
     Dosage: 2 ROUNDS OF R-CHOP CHEMOTHERAPY
  5. PREDNISONE [Concomitant]
     Active Substance: PREDNISONE
     Indication: Cutaneous T-cell lymphoma stage II
     Dosage: 2 ROUNDS OF R-CHOP CHEMOTHERAPY
  6. RITUXIMAB [Concomitant]
     Active Substance: RITUXIMAB
     Indication: Cutaneous T-cell lymphoma stage II
     Dosage: 2 ROUNDS OF R-CHOP CHEMOTHERAPY
  7. TRIAMCINOLONE [Concomitant]
     Active Substance: TRIAMCINOLONE
     Indication: Dermatitis atopic
  8. METHOTREXATE [Concomitant]
     Active Substance: METHOTREXATE
     Indication: Dermatitis atopic
  9. UPADACITINIB [Concomitant]
     Active Substance: UPADACITINIB
     Indication: Dermatitis atopic
     Dosage: 15MG
  10. DOXYCYCLINE [Concomitant]
     Active Substance: DOXYCYCLINE
     Indication: Evidence based treatment
  11. PREDNISONE [Concomitant]
     Active Substance: PREDNISONE
     Indication: Evidence based treatment
     Route: 048

REACTIONS (3)
  - Sepsis [Fatal]
  - Drug ineffective [Fatal]
  - Therapeutic product effect incomplete [Unknown]
